FAERS Safety Report 8831967 (Version 1)
Quarter: 2012Q4

REPORT INFORMATION
  Report Type: 
  Country: ES (occurrence: ES)
  Receive Date: 20121009
  Receipt Date: 20121009
  Transmission Date: 20130627
  Serious: Yes (Other)
  Sender: FDA-Public Use
  Company Number: ES-BAYER-2012-105396

PATIENT
  Age: 41 Year
  Sex: Male

DRUGS (4)
  1. ADIRO [Suspect]
     Dosage: 300 mg, UNK
     Route: 048
     Dates: start: 20120302, end: 20120306
  2. ESPIRONOLACTONA [Suspect]
     Indication: CARDIAC FAILURE
     Dosage: 50 mg, QD
     Route: 048
     Dates: start: 20120303, end: 20120310
  3. PARACETAMOL [Suspect]
     Dosage: 1 g, TID
     Route: 042
     Dates: start: 20120302, end: 20120303
  4. INDOMETACIN [Concomitant]
     Indication: ATRIAL SEPTAL DEFECT
     Dosage: 25 mg, TID
     Route: 048
     Dates: start: 20120306

REACTIONS (1)
  - Hepatitis [Recovered/Resolved]
